FAERS Safety Report 5742032-7 (Version None)
Quarter: 2008Q2

REPORT INFORMATION
  Report Type: 
  Country: None (occurrence: None)
  Receive Date: 20080519
  Receipt Date: 20080509
  Transmission Date: 20081010
  Serious: Yes (Hospitalization, Disabling, Other)
  Sender: FDA-Public Use
  Company Number: US-MERCK-0705USA01279

PATIENT
  Age: 52 Year
  Sex: Male
  Weight: 61 kg

DRUGS (4)
  1. FOSAMAX [Suspect]
     Indication: OSTEITIS DEFORMANS
     Route: 048
     Dates: start: 20030601, end: 20051201
  2. FOSAMAX [Suspect]
     Route: 048
     Dates: start: 20000301
  3. FOSAMAX [Suspect]
     Indication: PAIN
     Route: 048
     Dates: start: 20030601, end: 20051201
  4. FOSAMAX [Suspect]
     Route: 048
     Dates: start: 20000301

REACTIONS (30)
  - ABDOMINAL PAIN LOWER [None]
  - ABDOMINAL TENDERNESS [None]
  - ADVERSE EVENT [None]
  - ANXIETY [None]
  - DENTAL CARIES [None]
  - DEPRESSION [None]
  - DIARRHOEA [None]
  - DRUG INEFFECTIVE [None]
  - EAR PAIN [None]
  - EXOSTOSIS [None]
  - GENITAL LESION [None]
  - IMPAIRED HEALING [None]
  - INSOMNIA [None]
  - MASS [None]
  - MUSCLE SPASMS [None]
  - NECK PAIN [None]
  - NUMB CHIN SYNDROME [None]
  - OSTEOMYELITIS [None]
  - OSTEONECROSIS [None]
  - PAIN [None]
  - PAIN IN EXTREMITY [None]
  - PAIN IN JAW [None]
  - PRESBYOPIA [None]
  - PYREXIA [None]
  - RESORPTION BONE INCREASED [None]
  - TOOTH INFECTION [None]
  - TOOTH LOSS [None]
  - TOOTHACHE [None]
  - TRISMUS [None]
  - VISUAL DISTURBANCE [None]
